FAERS Safety Report 6882619-1 (Version None)
Quarter: 2010Q3

REPORT INFORMATION
  Report Type: 
  Country: None (occurrence: None)
  Receive Date: 20100701
  Receipt Date: 20090729
  Transmission Date: 20110219
  Serious: Yes (Hospitalization)
  Sender: FDA-Public Use
  Company Number: 09-ADE-SE-0017-ACT

PATIENT
  Age: 7 Month
  Sex: Male
  Weight: 11.7935 kg

DRUGS (3)
  1. H P ACTHAR [Suspect]
     Indication: INFANTILE SPASMS
     Dosage: .53 ML IM BID WITH TAPER
     Dates: start: 20090722
  2. SEPTRA - TIW [Concomitant]
  3. VIGABATRIN [Concomitant]

REACTIONS (3)
  - GLAUCOMA [None]
  - HYPERTENSION [None]
  - OEDEMA PERIPHERAL [None]
